FAERS Safety Report 4423582-2 (Version None)
Quarter: 2004Q3

REPORT INFORMATION
  Report Type: 
  Country: None (occurrence: None)
  Receive Date: 20040719
  Receipt Date: 20040416
  Transmission Date: 20050211
  Serious: Yes (Death)
  Sender: FDA-Public Use
  Company Number: M04-INT-074

PATIENT
  Age: 78 Year
  Sex: Male

DRUGS (8)
  1. INTEGRILIN [Suspect]
     Indication: CORONARY ANGIOPLASTY
     Dosage: IV BOLUS
     Route: 040
     Dates: start: 20040416, end: 20040416
  2. INTEGRILIN [Suspect]
     Indication: CORONARY ANGIOPLASTY
     Dosage: IV BOLUS
     Route: 040
     Dates: start: 20040416, end: 20040416
  3. BIVALIRUDIN SOLUTION (EXCEPT SYRUP) [Concomitant]
  4. CLOPIDOGREL [Concomitant]
  5. ASPIRIN [Concomitant]
  6. SIMVASTATIN [Concomitant]
  7. METOPROLOL [Concomitant]
  8. LISINOPRIL [Concomitant]

REACTIONS (1)
  - HAEMORRHAGE INTRACRANIAL [None]
